FAERS Safety Report 5098274-X (Version None)
Quarter: 2006Q3

REPORT INFORMATION
  Report Type: 
  Country: None (occurrence: None)
  Receive Date: 20060906
  Receipt Date: 20060830
  Transmission Date: 20061208
  Serious: Yes (Hospitalization)
  Sender: FDA-Public Use
  Company Number: FR-AVENTIS-200613014FR

PATIENT
  Age: 55 Year
  Sex: Male

DRUGS (2)
  1. FLAGYL ^AVENTIS^ [Suspect]
     Indication: SIGMOIDITIS
     Route: 048
     Dates: start: 20060826, end: 20060827
  2. DEBRIDAT [Concomitant]
     Indication: SIGMOIDITIS
     Route: 048
     Dates: start: 20060826

REACTIONS (2)
  - PURPURA [None]
  - URTICARIA [None]
